FAERS Safety Report 4885817-1 (Version None)
Quarter: 2006Q1

REPORT INFORMATION
  Report Type: 
  Country: None (occurrence: None)
  Receive Date: 20060120
  Receipt Date: 20051206
  Transmission Date: 20060701
  Serious: Yes (Other)
  Sender: FDA-Public Use
  Company Number: PHBS2005BE18235

PATIENT
  Age: 68 Year
  Sex: Female

DRUGS (13)
  1. AREDIA [Suspect]
     Indication: METASTASES TO BONE
     Dates: end: 20040101
  2. OMEPRAZOLE [Concomitant]
     Dosage: 20 MG/D
     Route: 065
  3. SERTRALINE HCL [Concomitant]
     Route: 065
  4. MS CONTIN [Concomitant]
     Dosage: 10 MG, BID
     Route: 065
  5. OL-AMINE [Concomitant]
     Route: 065
  6. ENTEROL [Concomitant]
     Route: 065
  7. LOSFERRON [Concomitant]
     Route: 065
  8. CHEMOTHERAPEUTICS,OTHER [Concomitant]
     Route: 065
  9. ZOMETA [Suspect]
     Indication: METASTASES TO BONE
     Dosage: UNK, UNK
     Dates: start: 20040101
  10. FOLAVIT [Concomitant]
     Dosage: 4 MG/D
     Route: 065
  11. ATROVENT [Concomitant]
     Route: 065
  12. ENDOXAN [Concomitant]
     Dates: start: 20021201, end: 20050801
  13. RADIOTHERAPY [Concomitant]
     Dosage: ON D6-D11
     Route: 065
     Dates: start: 20010101, end: 20020101

REACTIONS (9)
  - BONE SWELLING [None]
  - ERYTHEMA [None]
  - IMPAIRED HEALING [None]
  - LOCAL SWELLING [None]
  - NECK PAIN [None]
  - OSTEITIS [None]
  - OSTEONECROSIS [None]
  - TOOTH ABSCESS [None]
  - TOOTH EXTRACTION [None]
